FAERS Safety Report 4411763-3 (Version None)
Quarter: 2004Q3

REPORT INFORMATION
  Report Type: 
  Country: None (occurrence: None)
  Receive Date: 20040728
  Receipt Date: 20040706
  Transmission Date: 20050211
  Serious: Yes (Other)
  Sender: FDA-Public Use
  Company Number: DE_040713909

PATIENT
  Age: 45 Year
  Sex: Male

DRUGS (1)
  1. CIALIS [Suspect]
     Indication: ERECTILE DYSFUNCTION
     Dosage: 10 MG AS NEEDED
     Dates: start: 20040603, end: 20040603

REACTIONS (7)
  - CIRCULATORY COLLAPSE [None]
  - DEAFNESS UNILATERAL [None]
  - DIZZINESS POSTURAL [None]
  - GAIT DISTURBANCE [None]
  - HYPERHIDROSIS [None]
  - STRESS SYMPTOMS [None]
  - SUDDEN HEARING LOSS [None]
